FAERS Safety Report 9959274 (Version 2)
Quarter: 2014Q1

REPORT INFORMATION
  Report Type: Spontaneous
  Country: JP (occurrence: None)
  Receive Date: 20140228
  Receipt Date: 20140321
  Transmission Date: 20141002
  Serious: Yes (Hospitalization)
  Sender: FDA-Public Use
  Company Number: ABR_01512_2014

PATIENT
  Sex: Female

DRUGS (1)
  1. GLIDAEL (GLIADEL-CARMUSTINE) 7.7 MG [Suspect]
     Indication: MALIGNANT GLIOMA
     Dosage: INTRACEREBRAL
     Dates: start: 20140129, end: 20140131

REACTIONS (2)
  - Depressed level of consciousness [None]
  - Pneumocephalus [None]
